FAERS Safety Report 23515689 (Version 1)
Quarter: 2024Q1

REPORT INFORMATION
  Report Type: Report from Study
  Country: US (occurrence: US)
  Receive Date: 20240213
  Receipt Date: 20240213
  Transmission Date: 20240410
  Serious: Yes (Hospitalization)
  Sender: FDA-Public Use
  Company Number: US-ABBVIE-5597688

PATIENT
  Age: 73 Year
  Sex: Male

DRUGS (16)
  1. VENCLEXTA [Suspect]
     Active Substance: VENETOCLAX
     Indication: B precursor type acute leukaemia
     Route: 048
     Dates: start: 20201005
  2. VENCLEXTA [Suspect]
     Active Substance: VENETOCLAX
     Indication: B precursor type acute leukaemia
     Route: 048
  3. NIFEDIPINE [Concomitant]
     Active Substance: NIFEDIPINE
     Indication: Product used for unknown indication
     Dosage: STRENGTH 30 MG
     Dates: start: 20240108
  4. VITAMIN C [Concomitant]
     Active Substance: ASCORBIC ACID
     Indication: Product used for unknown indication
     Dosage: STRENGTH 250 MG
     Route: 048
     Dates: start: 20240108
  5. OMEGA 3 [Concomitant]
     Active Substance: CAPSAICIN
     Indication: Product used for unknown indication
     Dosage: STRENGTH 1000 MG
     Route: 048
     Dates: start: 20240108
  6. KYOLIC [Concomitant]
     Indication: Product used for unknown indication
     Dates: start: 20240108
  7. CALCIUM CARBONATE\CHOLECALCIFEROL [Concomitant]
     Active Substance: CALCIUM CARBONATE\CHOLECALCIFEROL
     Indication: Product used for unknown indication
     Route: 048
     Dates: start: 20240108
  8. VITAMIN D3 [Concomitant]
     Active Substance: CHOLECALCIFEROL
     Indication: Product used for unknown indication
     Dosage: STRENGTH 250 MICROGRAM
     Route: 048
     Dates: start: 20240108
  9. VITAMIN B12 [Concomitant]
     Active Substance: CYANOCOBALAMIN
     Indication: Product used for unknown indication
     Dosage: STRENGTH 1000 MICROGRAM
     Route: 048
     Dates: start: 20240108
  10. ADVAIR HFA [Concomitant]
     Active Substance: FLUTICASONE PROPIONATE\SALMETEROL XINAFOATE
     Indication: Product used for unknown indication
     Dates: start: 20240108
  11. PANADOL EXTRA [Concomitant]
     Active Substance: ACETAMINOPHEN\CAFFEINE
     Indication: Product used for unknown indication
     Dosage: FORM STRENGTH: 500 MILLIGRAM
     Route: 048
     Dates: start: 20240108
  12. GLIMEPIRIDE [Concomitant]
     Active Substance: GLIMEPIRIDE
     Indication: Product used for unknown indication
     Dosage: STRENGTH 4 MG
     Route: 048
     Dates: start: 20240117
  13. LIPITOR [Concomitant]
     Active Substance: ATORVASTATIN CALCIUM
     Indication: Product used for unknown indication
     Dosage: STRENGTH 20 MG
     Dates: start: 20240108
  14. MAGNESIUM [Concomitant]
     Active Substance: MAGNESIUM
     Indication: Product used for unknown indication
     Dosage: STRENGTH 500 MG
     Route: 048
     Dates: start: 20240108
  15. HYDROCHLOROTHIAZIDE\IRBESARTAN [Concomitant]
     Active Substance: HYDROCHLOROTHIAZIDE\IRBESARTAN
     Indication: Product used for unknown indication
     Dates: start: 20240108
  16. VIDAZA [Suspect]
     Active Substance: AZACITIDINE
     Indication: Product used for unknown indication
     Route: 042

REACTIONS (9)
  - Myocardial necrosis marker increased [Not Recovered/Not Resolved]
  - Chills [Recovered/Resolved]
  - Blood glucose increased [Unknown]
  - Pyrexia [Not Recovered/Not Resolved]
  - Decreased appetite [Not Recovered/Not Resolved]
  - Headache [Not Recovered/Not Resolved]
  - Chills [Not Recovered/Not Resolved]
  - Chest pain [Not Recovered/Not Resolved]
  - Diarrhoea [Not Recovered/Not Resolved]

NARRATIVE: CASE EVENT DATE: 20240108
